FAERS Safety Report 19680575 (Version 1)
Quarter: 2021Q3

REPORT INFORMATION
  Report Type: Spontaneous
  Country: NL (occurrence: FR)
  Receive Date: 20210810
  Receipt Date: 20210810
  Transmission Date: 20211014
  Serious: Yes (Other)
  Sender: FDA-Public Use
  Company Number: FR-FRESENIUS KABI-FK202108100

PATIENT
  Age: 86 Year
  Sex: Male
  Weight: 62.6 kg

DRUGS (1)
  1. LINEZOLID KABI [Suspect]
     Active Substance: LINEZOLID
     Indication: CORYNEBACTERIUM BACTERAEMIA
     Dosage: 120 MG ONCE DAILY
     Route: 042
     Dates: start: 20210703, end: 20210709

REACTIONS (4)
  - Condition aggravated [Recovered/Resolved]
  - Disturbance in attention [Recovered/Resolved]
  - Acute kidney injury [Recovered/Resolved]
  - Somnolence [Recovered/Resolved]

NARRATIVE: CASE EVENT DATE: 20210703
